FAERS Safety Report 5775993-0 (Version None)
Quarter: 2008Q2

REPORT INFORMATION
  Report Type: 
  Country: None (occurrence: None)
  Receive Date: 20080613
  Receipt Date: 20080530
  Transmission Date: 20081010
  Serious: Yes (Death, Other)
  Sender: FDA-Public Use
  Company Number: MC200800212

PATIENT
  Age: 51 Year
  Sex: Male

DRUGS (8)
  1. ANGIOMAX [Suspect]
     Indication: PERCUTANEOUS CORONARY INTERVENTION
     Dosage: BOLUS, INTRAVENOUS; INTRAVENOUS
     Route: 040
     Dates: start: 20080425, end: 20080425
  2. ANGIOMAX [Suspect]
     Indication: PERCUTANEOUS CORONARY INTERVENTION
     Dosage: BOLUS, INTRAVENOUS; INTRAVENOUS
     Route: 040
     Dates: start: 20080425, end: 20080425
  3. HEPARIN [Suspect]
     Indication: MYOCARDIAL INFARCTION
     Dosage: PER PROTOCOL, BOLUS, INTRAVENOUS; PER PROTOCOL, IV DRIP
     Route: 040
     Dates: start: 20080425, end: 20080425
  4. HEPARIN [Suspect]
     Indication: MYOCARDIAL INFARCTION
     Dosage: PER PROTOCOL, BOLUS, INTRAVENOUS; PER PROTOCOL, IV DRIP
     Route: 040
     Dates: start: 20080425, end: 20080425
  5. REOPRO [Suspect]
     Indication: PERCUTANEOUS CORONARY INTERVENTION
     Dates: start: 20080425, end: 20080425
  6. PLAVIX [Suspect]
     Indication: PERCUTANEOUS CORONARY INTERVENTION
     Dates: start: 20080425, end: 20080425
  7. LOPRESSOR [Concomitant]
  8. NITROGLYCERIN [Concomitant]

REACTIONS (14)
  - AGGRESSION [None]
  - APNOEA [None]
  - BRADYCARDIA [None]
  - CARDIAC ARREST [None]
  - CHOLELITHIASIS [None]
  - GASTRIC HAEMORRHAGE [None]
  - HYPERHIDROSIS [None]
  - HYPOTENSION [None]
  - LOSS OF CONSCIOUSNESS [None]
  - NAUSEA [None]
  - RETROPERITONEAL HAEMORRHAGE [None]
  - SCROTAL SWELLING [None]
  - TREATMENT FAILURE [None]
  - VENTRICULAR FIBRILLATION [None]
